FAERS Safety Report 22141294 (Version 1)
Quarter: 2023Q1

REPORT INFORMATION
  Report Type: Spontaneous
  Country: US (occurrence: None)
  Receive Date: 20230324
  Receipt Date: 20230324
  Transmission Date: 20230417
  Serious: Yes (Hospitalization)
  Sender: FDA-Public Use
  Company Number: None

PATIENT
  Age: 71 Year
  Sex: Male
  Weight: 83.91 kg

DRUGS (19)
  1. ERLEADA [Suspect]
     Active Substance: APALUTAMIDE
     Indication: Prostate cancer
     Dosage: FREQUENCY : DAILY;?
     Route: 048
     Dates: start: 202302
  2. ACETAMINOPHEN [Concomitant]
  3. ADVIL [Concomitant]
     Active Substance: IBUPROFEN
  4. ADVIL PM [Concomitant]
  5. AMLODIPINE [Concomitant]
  6. ATORVASTATIN [Concomitant]
  7. CARVEDILOL [Concomitant]
     Active Substance: CARVEDILOL
  8. CLIMDAMYCIN [Concomitant]
  9. CLOTRIMAZOLE [Concomitant]
  10. EZETIMIBE [Concomitant]
  11. FINASTERIDE [Concomitant]
  12. GLIPIZIDE [Concomitant]
  13. LARATADINE [Concomitant]
  14. MINOXIDIL [Concomitant]
  15. PANTOPRAZOLE [Concomitant]
  16. POTASSIUM [Concomitant]
  17. TAMSULOSIN [Concomitant]
  18. TOUJEL SOLOSTAR [Concomitant]
  19. VENLAFAXINE [Concomitant]

REACTIONS (1)
  - Pneumonia aspiration [None]

NARRATIVE: CASE EVENT DATE: 20230319
